FAERS Safety Report 6138522-8 (Version None)
Quarter: 2009Q1

REPORT INFORMATION
  Report Type: 
  Country: None (occurrence: None)
  Receive Date: 20090331
  Receipt Date: 20090126
  Transmission Date: 20090719
  Serious: Yes (Hospitalization)
  Sender: FDA-Public Use
  Company Number: JP-ASTRAZENECA-2008AP09174

PATIENT
  Age: 31153 Day
  Sex: Male

DRUGS (23)
  1. ESOMEPRAZOLE [Suspect]
     Route: 048
     Dates: start: 20080612
  2. NIFLAN [Concomitant]
     Indication: CONJUNCTIVITIS
     Dosage: OPTIMAL DOSE
     Route: 047
     Dates: start: 20020906
  3. ALESION [Concomitant]
     Indication: PRURITUS
     Route: 048
     Dates: start: 20070630
  4. WYPAX [Concomitant]
     Indication: PSYCHOSOMATIC DISEASE
     Route: 048
     Dates: start: 20071107
  5. HIRUDOID [Concomitant]
     Indication: PRURITUS
     Dosage: OPTIMAL DOSE AS REQUIRED
     Route: 062
     Dates: start: 20071122
  6. LOCOID [Concomitant]
     Indication: PRURITUS
     Dosage: OPTIMAL DOSE AS REQUIRED
     Route: 062
     Dates: start: 20071122
  7. HYPEN [Concomitant]
     Indication: HERPES ZOSTER
     Route: 048
     Dates: start: 20071205
  8. GASTROM [Concomitant]
     Indication: PROPHYLAXIS AGAINST GASTROINTESTINAL ULCER
     Route: 048
     Dates: start: 20071205
  9. EURAX [Concomitant]
     Indication: PRURITUS
     Dosage: OPTIMAL DOSE AS REQUIRED
     Route: 062
     Dates: start: 20080117
  10. MYSER [Concomitant]
     Indication: PRURITUS
     Dosage: OPTIMAL DOSE AS REQUIRED
     Route: 062
     Dates: start: 20080117
  11. LULICON [Concomitant]
     Indication: TINEA PEDIS
     Dosage: OPTIMAL DOSE
     Route: 062
     Dates: start: 20080125
  12. TAKEPRON [Concomitant]
     Indication: GASTRIC ULCER
     Dosage: DOSE UNKNOWN
     Route: 048
     Dates: end: 20080604
  13. ARTZ [Concomitant]
     Indication: OSTEOARTHRITIS
     Dosage: DOSE UNKNOWN
     Route: 065
     Dates: start: 20080605, end: 20080605
  14. ARTZ [Concomitant]
     Dosage: DOSE UNKNOWN
     Route: 065
     Dates: start: 20080703, end: 20080703
  15. ARTZ [Concomitant]
     Dosage: DOSE UNKNOWN
     Route: 065
     Dates: start: 20080806, end: 20080806
  16. VE-NICOTINATE [Concomitant]
     Indication: HYPERLIPIDAEMIA
     Route: 048
     Dates: start: 20080702
  17. JUVELA N [Concomitant]
     Indication: HYPERLIPIDAEMIA
     Dosage: DOSE UNKNOWN
     Route: 048
     Dates: end: 20080708
  18. BETNOVAL G [Concomitant]
     Indication: ACNE PUSTULAR
     Dosage: DOSE UNKNOWN
     Route: 062
     Dates: start: 20080808, end: 20080822
  19. CALBLOCK [Concomitant]
     Indication: HYPERTENSION
     Dosage: DOSE UNKNOWN
     Route: 048
     Dates: end: 20080902
  20. TANATRIL [Concomitant]
     Indication: HYPERTENSION
     Route: 048
     Dates: start: 20081008
  21. CREOSOTE [Concomitant]
     Indication: DIARRHOEA
     Dosage: DOSE UNKNOWN
     Route: 048
     Dates: start: 20081103, end: 20081103
  22. VOLTAREN [Concomitant]
     Indication: OSTEOARTHRITIS
     Dosage: DOSE UNKNOWN, AS REQUIRED
     Route: 062
  23. ZEPOLAS [Concomitant]
     Indication: OSTEOARTHRITIS
     Dosage: DOSE UNKNOWN, AS REQUIRED
     Route: 062

REACTIONS (1)
  - LUMBAR SPINAL STENOSIS [None]
